FAERS Safety Report 7406370-4 (Version None)
Quarter: 2011Q2

REPORT INFORMATION
  Report Type: 
  Country: None (occurrence: None)
  Receive Date: 20110405
  Receipt Date: 20110405
  Transmission Date: 20111010
  Serious: Yes (Hospitalization)
  Sender: FDA-Public Use
  Company Number: None

PATIENT
  Age: 89 Year
  Sex: Male

DRUGS (3)
  1. VOLTAREN [Suspect]
     Indication: OSTEOARTHRITIS
     Dosage: BID TOP PRIOR TO ADMISSION
     Route: 061
  2. LASIX [Suspect]
     Indication: CARDIAC FAILURE CONGESTIVE
     Dosage: 80MG DAILY PO PRIOR TO ADMISSION
     Route: 048
  3. LASIX [Suspect]
     Indication: HYPERTENSION
     Dosage: 80MG DAILY PO PRIOR TO ADMISSION
     Route: 048

REACTIONS (5)
  - CONFUSIONAL STATE [None]
  - INCOHERENT [None]
  - BLOOD CREATININE INCREASED [None]
  - RENAL FAILURE ACUTE [None]
  - BLOOD UREA INCREASED [None]
